FAERS Safety Report 5154786-1 (Version None)
Quarter: 2006Q4

REPORT INFORMATION
  Report Type: 
  Country: None (occurrence: None)
  Receive Date: 20061116
  Receipt Date: 20061116
  Transmission Date: 20070319
  Serious: Yes (Life-Threatening, Hospitalization)
  Sender: FDA-Public Use
  Company Number: None

PATIENT
  Sex: Male
  Weight: 104.3273 kg

DRUGS (2)
  1. EQUATE    500MG     PERRIGO [Suspect]
     Indication: ARTHRITIS
     Dosage: 2  EVERY 6 HOURS  PO
     Route: 048
     Dates: start: 20061015, end: 20061103
  2. EQUATE    500MG     PERRIGO [Suspect]
     Indication: HEADACHE
     Dosage: 2  EVERY 6 HOURS  PO
     Route: 048
     Dates: start: 20061015, end: 20061103

REACTIONS (4)
  - ABDOMINAL PAIN UPPER [None]
  - HAEMORRHAGE [None]
  - PHARMACEUTICAL PRODUCT COMPLAINT [None]
  - VOMITING [None]
